FAERS Safety Report 16333839 (Version 1)
Quarter: 2019Q2

REPORT INFORMATION
  Report Type: Spontaneous
  Country: US (occurrence: US)
  Receive Date: 20190520
  Receipt Date: 20190520
  Transmission Date: 20190711
  Serious: Yes (Other)
  Sender: FDA-Public Use
  Company Number: US-COOPERSURGICAL, INC.-US-2019CPS001476

PATIENT
  Age: 39 Year
  Sex: Female

DRUGS (2)
  1. PARAGARD T 380A [Suspect]
     Active Substance: COPPER
     Indication: PRODUCT USED FOR UNKNOWN INDICATION
     Dosage: UNK
     Route: 015
     Dates: start: 2012, end: 20190423
  2. PARAGARD T 380A [Suspect]
     Active Substance: COPPER
     Dosage: UNK
     Route: 015
     Dates: start: 20190426

REACTIONS (9)
  - Abortion induced [Recovered/Resolved]
  - Drug ineffective [Unknown]
  - Foetal death [Recovered/Resolved]
  - Pregnancy with contraceptive device [Recovered/Resolved]
  - Breast tenderness [Unknown]
  - Nausea [Unknown]
  - Device expulsion [Recovered/Resolved]
  - Menstruation irregular [Unknown]
  - Metrorrhagia [Unknown]

NARRATIVE: CASE EVENT DATE: 201903
